FAERS Safety Report 18165127 (Version 1)
Quarter: 2020Q3

REPORT INFORMATION
  Report Type: Spontaneous
  Country: CO (occurrence: CO)
  Receive Date: 20200819
  Receipt Date: 20200819
  Transmission Date: 20201103
  Serious: Yes (Death, Life-Threatening, Hospitalization, Other)
  Sender: FDA-Public Use
  Company Number: CO-ACCORD-196493

PATIENT
  Age: 18 Year
  Sex: Female

DRUGS (1)
  1. AMLODIPINE [Suspect]
     Active Substance: AMLODIPINE BESYLATE
     Route: 048

REACTIONS (6)
  - Intentional overdose [Unknown]
  - Blood pressure decreased [Fatal]
  - Hypoperfusion [Fatal]
  - Suicide attempt [Unknown]
  - Renal impairment [Fatal]
  - Hyperlactacidaemia [Fatal]
